FAERS Safety Report 16185675 (Version 2)
Quarter: 2020Q3

REPORT INFORMATION
  Report Type: Spontaneous
  Country: US (occurrence: US)
  Receive Date: 20190411
  Receipt Date: 20200804
  Transmission Date: 20201102
  Serious: Yes (Hospitalization)
  Sender: FDA-Public Use
  Company Number: US-JNJFOC-20190344875

PATIENT
  Age: 28 Year
  Sex: Female

DRUGS (1)
  1. XARELTO [Suspect]
     Active Substance: RIVAROXABAN
     Indication: PULMONARY EMBOLISM
     Dosage: VARIABLE DOSE OF 15 MG AND 20 MG
     Route: 048
     Dates: start: 201501

REACTIONS (1)
  - Menometrorrhagia [Recovered/Resolved]

NARRATIVE: CASE EVENT DATE: 20150117
